FAERS Safety Report 23257952 (Version 1)
Quarter: 2023Q4

REPORT INFORMATION
  Report Type: Spontaneous
  Country: US (occurrence: US)
  Receive Date: 20231204
  Receipt Date: 20231204
  Transmission Date: 20240110
  Serious: Yes (Other)
  Sender: FDA-Public Use
  Company Number: US-ABBVIE-5521343

PATIENT
  Sex: Female

DRUGS (1)
  1. RESTASIS [Suspect]
     Active Substance: CYCLOSPORINE
     Indication: Dry eye
     Route: 047

REACTIONS (4)
  - Deafness [Unknown]
  - Multiple use of single-use product [Unknown]
  - Lyme disease [Unknown]
  - Ehlers-Danlos syndrome [Unknown]

NARRATIVE: CASE EVENT DATE: 20110101
